FAERS Safety Report 5520393-1 (Version None)
Quarter: 2007Q4

REPORT INFORMATION
  Report Type: 
  Country: None (occurrence: None)
  Receive Date: 20071114
  Receipt Date: 20071101
  Transmission Date: 20080405
  Serious: Yes (Hospitalization, Other)
  Sender: FDA-Public Use
  Company Number: 2007MP000606

PATIENT
  Age: 50 Year
  Sex: Female

DRUGS (3)
  1. GLIADEL [Suspect]
     Indication: GLIOBLASTOMA
     Dosage: 61.6 MG; X1; ICER
     Dates: start: 20071008
  2. KEPPRA [Concomitant]
  3. DECADRON [Concomitant]

REACTIONS (7)
  - BRAIN OEDEMA [None]
  - DEEP VEIN THROMBOSIS [None]
  - FATIGUE [None]
  - HEMIPARESIS [None]
  - PNEUMOCEPHALUS [None]
  - POST PROCEDURAL COMPLICATION [None]
  - SPEECH DISORDER [None]
